FAERS Safety Report 19123294 (Version 2)
Quarter: 2021Q2

REPORT INFORMATION
  Report Type: Spontaneous
  Country: US (occurrence: US)
  Receive Date: 20210412
  Receipt Date: 20210415
  Transmission Date: 20210717
  Serious: No
  Sender: FDA-Public Use
  Company Number: US-PFIZER INC-2021214738

PATIENT
  Sex: Female

DRUGS (5)
  1. TESSALON [Suspect]
     Active Substance: BENZONATATE
     Dosage: UNK
  2. MOTRIN [NAPROXEN] [Suspect]
     Active Substance: NAPROXEN
     Dosage: UNK
  3. BENADRYL [Suspect]
     Active Substance: DIPHENHYDRAMINE HYDROCHLORIDE
     Dosage: UNK
  4. AZITHROMYCIN ANHYDROUS. [Suspect]
     Active Substance: AZITHROMYCIN ANHYDROUS
     Dosage: UNK
  5. AMOXICILLIN. [Suspect]
     Active Substance: AMOXICILLIN
     Dosage: UNK

REACTIONS (2)
  - Rash erythematous [Unknown]
  - Rash pruritic [Unknown]
